FAERS Safety Report 11443689 (Version 1)
Quarter: 2015Q3

REPORT INFORMATION
  Report Type: Report from Study
  Country: IT (occurrence: IT)
  Receive Date: 20150901
  Receipt Date: 20150901
  Transmission Date: 20151125
  Serious: Yes (Death)
  Sender: FDA-Public Use
  Company Number: IT-PFIZER INC-2015275591

PATIENT
  Age: 69 Year
  Sex: Male

DRUGS (10)
  1. VINCRISTINE SULFATE. [Suspect]
     Active Substance: VINCRISTINE SULFATE
     Indication: FOLLICLE CENTRE LYMPHOMA, FOLLICULAR GRADE I, II, III
     Dosage: 6 COURSES
  2. CYCLOPHOSPHAMIDE. [Suspect]
     Active Substance: CYCLOPHOSPHAMIDE
     Indication: FOLLICLE CENTRE LYMPHOMA, FOLLICULAR GRADE I, II, III
     Dosage: 1 GR/M2 ON DAY1
     Route: 042
  3. DEXAMETHASONE. [Suspect]
     Active Substance: DEXAMETHASONE
     Indication: FOLLICLE CENTRE LYMPHOMA, FOLLICULAR GRADE I, II, III
  4. RITUXIMAB [Suspect]
     Active Substance: RITUXIMAB
     Dosage: 250 MG/M2, CYCLIC
  5. MITOXANTRONE HCL [Suspect]
     Active Substance: MITOXANTRONE HYDROCHLORIDE
     Indication: FOLLICLE CENTRE LYMPHOMA, FOLLICULAR GRADE I, II, III
  6. RITUXIMAB [Suspect]
     Active Substance: RITUXIMAB
     Indication: FOLLICLE CENTRE LYMPHOMA, FOLLICULAR GRADE I, II, III
     Dosage: 375 MG/M2, ON DAY 4 OF EACH CYCLE EVERY 28 DAYS
     Route: 042
  7. DOXORUBICIN HCL [Suspect]
     Active Substance: DOXORUBICIN HYDROCHLORIDE
     Indication: FOLLICLE CENTRE LYMPHOMA, FOLLICULAR GRADE I, II, III
     Dosage: 6 COURSES
  8. YTTRIUM 90 IBRITUMOMAB TIUXETAN [Suspect]
     Active Substance: YTTRIUM Y-90 IBRITUMOMAB TIUXETAN
     Indication: FOLLICLE CENTRE LYMPHOMA, FOLLICULAR GRADE I, II, III
     Route: 042
  9. PREDNISONE. [Suspect]
     Active Substance: PREDNISONE
     Indication: FOLLICLE CENTRE LYMPHOMA, FOLLICULAR GRADE I, II, III
     Dosage: 6 COURSES
  10. FLUDARABINE [Suspect]
     Active Substance: FLUDARABINE PHOSPHATE
     Indication: FOLLICLE CENTRE LYMPHOMA, FOLLICULAR GRADE I, II, III
     Dosage: 25 MG/M2, DAYS 1 TO 3
     Route: 042

REACTIONS (1)
  - Myelodysplastic syndrome [Fatal]
